FAERS Safety Report 9995964 (Version 3)
Quarter: 2014Q2

REPORT INFORMATION
  Report Type: Report from Study
  Country: DE (occurrence: DE)
  Receive Date: 20140311
  Receipt Date: 20140416
  Transmission Date: 20141212
  Serious: Yes (Hospitalization)
  Sender: FDA-Public Use
  Company Number: DE-ABBVIE-14P-062-1199374-00

PATIENT
  Sex: Female
  Weight: 50 kg

DRUGS (2)
  1. HUMIRA [Suspect]
     Indication: CROHN^S DISEASE
     Route: 058
     Dates: start: 20131008, end: 201401
  2. HUMIRA [Suspect]
     Dates: start: 201403

REACTIONS (2)
  - Impaired healing [Not Recovered/Not Resolved]
  - Abscess [Not Recovered/Not Resolved]
